FAERS Safety Report 5231566-X (Version None)
Quarter: 2007Q1

REPORT INFORMATION
  Report Type: 
  Country: None (occurrence: None)
  Receive Date: 20061201
  Receipt Date: 20060913
  Transmission Date: 20070707
  Serious: No
  Sender: FDA-Public Use
  Company Number: 2006PV021214

PATIENT
  Age: 76 Year
  Sex: Male
  Weight: 112.4921 kg

DRUGS (10)
  1. BYETTA [Suspect]
     Indication: DIABETES MELLITUS NON-INSULIN-DEPENDENT
     Dosage: SEE IMAGE
     Route: 058
     Dates: start: 20060909, end: 20060909
  2. BYETTA [Suspect]
     Indication: DIABETES MELLITUS NON-INSULIN-DEPENDENT
     Dosage: SEE IMAGE
     Route: 058
     Dates: start: 20060912
  3. LANTUS [Concomitant]
  4. GLUCOTROL XL [Concomitant]
  5. LANTUS [Concomitant]
  6. LEXAPRO [Concomitant]
  7. XANAX [Concomitant]
  8. ASPIRIN [Concomitant]
  9. COZAAR [Concomitant]
  10. ZOCOR [Concomitant]

REACTIONS (8)
  - ANXIETY [None]
  - DIARRHOEA [None]
  - FEELING ABNORMAL [None]
  - FEELING JITTERY [None]
  - HEADACHE [None]
  - MEMORY IMPAIRMENT [None]
  - NAUSEA [None]
  - WEIGHT DECREASED [None]
